FAERS Safety Report 4310397-9 (Version None)
Quarter: 2004Q1

REPORT INFORMATION
  Report Type: 
  Country: None (occurrence: None)
  Receive Date: 20040302
  Receipt Date: 20040218
  Transmission Date: 20041129
  Serious: Yes (Life-Threatening)
  Sender: FDA-Public Use
  Company Number: 2004-112997-NL

PATIENT
  Age: 57 Year
  Sex: Male

DRUGS (3)
  1. VECURONIUM BROMIDE [Suspect]
     Indication: GENERAL ANAESTHESIA
     Dosage: INTRAVENOUS (NOS)
     Route: 042
     Dates: start: 20040205, end: 20040205
  2. THIOPENTAL SODIUM [Suspect]
     Indication: GENERAL ANAESTHESIA
     Dosage: INTRAVENOUS (NOS)
     Route: 042
     Dates: start: 20040205, end: 20040205
  3. FENTANYL [Suspect]
     Indication: GENERAL ANAESTHESIA
     Dosage: INTRAVENOUS (NOS)
     Route: 042
     Dates: start: 20040205, end: 20040205

REACTIONS (6)
  - ANAPHYLACTIC REACTION [None]
  - BRONCHOSPASM [None]
  - ERYTHEMA [None]
  - PILOERECTION [None]
  - TACHYCARDIA [None]
  - URTICARIA [None]
